FAERS Safety Report 11257832 (Version 2)
Quarter: 2015Q3

REPORT INFORMATION
  Report Type: Spontaneous
  Country: CZ (occurrence: CZ)
  Receive Date: 20150710
  Receipt Date: 20150717
  Transmission Date: 20151125
  Serious: Yes (Life-Threatening, Hospitalization)
  Sender: FDA-Public Use
  Company Number: CZ-ASTRAZENECA-2015SE65625

PATIENT
  Age: 65 Year
  Sex: Female
  Weight: 124 kg

DRUGS (3)
  1. FORXIGA [Suspect]
     Active Substance: DAPAGLIFLOZIN
     Indication: DIABETES MELLITUS
     Route: 048
     Dates: start: 20141205, end: 201412
  2. NOVOMIXA [Concomitant]
     Indication: DIABETES MELLITUS
     Dates: end: 201412
  3. METFORMIN [Concomitant]
     Active Substance: METFORMIN HYDROCHLORIDE
     Indication: DIABETES MELLITUS

REACTIONS (2)
  - Urosepsis [Recovered/Resolved with Sequelae]
  - Escherichia test positive [Unknown]

NARRATIVE: CASE EVENT DATE: 201412
